FAERS Safety Report 25924483 (Version 1)
Quarter: 2025Q4

REPORT INFORMATION
  Report Type: Spontaneous
  Country: US (occurrence: None)
  Receive Date: 20251012
  Receipt Date: 20251012
  Transmission Date: 20260118
  Serious: No
  Sender: FDA-CTU
  Company Number: None

PATIENT
  Age: 28 Year
  Sex: Female
  Weight: 60.3 kg

DRUGS (2)
  1. EXCHANGE SELECT MUCUS DM [Suspect]
     Active Substance: DEXTROMETHORPHAN HYDROBROMIDE\GUAIFENESIN
     Indication: Nasopharyngitis
     Dates: start: 20251011, end: 20251012
  2. EXCHANGE SELECT MUCUS DM [Suspect]
     Active Substance: DEXTROMETHORPHAN HYDROBROMIDE\GUAIFENESIN
     Indication: Cough

REACTIONS (5)
  - Diarrhoea [None]
  - Vomiting [None]
  - Insomnia [None]
  - Heart rate increased [None]
  - Chills [None]

NARRATIVE: CASE EVENT DATE: 20251011
